FAERS Safety Report 19159831 (Version 1)
Quarter: 2021Q2

REPORT INFORMATION
  Report Type: Spontaneous
  Country: NO (occurrence: NO)
  Receive Date: 20210420
  Receipt Date: 20210420
  Transmission Date: 20210717
  Serious: Yes (Other)
  Sender: FDA-Public Use
  Company Number: NO-SA-2021SA124860

PATIENT
  Age: 41 Year
  Sex: Male
  Weight: 77 kg

DRUGS (2)
  1. STILNOCT [Suspect]
     Active Substance: ZOLPIDEM TARTRATE
     Indication: INSOMNIA
     Dosage: 1 TABLET BEFORE BEDTIME
     Route: 048
     Dates: start: 20210116, end: 202102
  2. PARALGIN FORTE [CODEINE PHOSPHATE;PARACETAMOL] [Concomitant]
     Indication: PAIN
     Dosage: PARALGIN FORTE TAB 400 MG/30 MG
     Dates: start: 20201202

REACTIONS (7)
  - Fear [Unknown]
  - Poor quality sleep [Unknown]
  - Urinary incontinence [Recovering/Resolving]
  - Headache [Unknown]
  - Nightmare [Unknown]
  - Depression [Unknown]
  - Erectile dysfunction [Unknown]

NARRATIVE: CASE EVENT DATE: 202101
